FAERS Safety Report 10039555 (Version 2)
Quarter: 2014Q1

REPORT INFORMATION
  Report Type: Spontaneous
  Country: US (occurrence: US)
  Receive Date: 20140326
  Receipt Date: 20140326
  Transmission Date: 20141002
  Serious: Yes (Hospitalization)
  Sender: FDA-Public Use
  Company Number: US-B.I. PHARMACEUTICALS,INC./RIDGEFIELD-2013-BI-30315BP

PATIENT
  Age: 82 Year
  Sex: Female
  Weight: 58.06 kg

DRUGS (19)
  1. PRADAXA [Suspect]
     Indication: ATRIAL FIBRILLATION
     Dosage: 150 MG
     Route: 048
     Dates: start: 20111110, end: 20111221
  2. PRADAXA [Suspect]
     Indication: CEREBROVASCULAR ACCIDENT PROPHYLAXIS
  3. LASIX [Concomitant]
     Dosage: 20 MG
     Route: 048
     Dates: start: 2007
  4. XANAX [Concomitant]
     Dosage: 0.5 MG
     Route: 048
     Dates: start: 20070712
  5. COREG [Concomitant]
     Dosage: 50 MG
     Route: 048
     Dates: start: 2007
  6. IMDUR [Concomitant]
     Dosage: 30 MG
     Route: 048
     Dates: start: 2007
  7. LISINOPRIL [Concomitant]
     Dosage: 20 MG
     Route: 048
     Dates: start: 20080428
  8. CRESTOR [Concomitant]
     Dosage: 5 MG
     Route: 048
     Dates: start: 20081110
  9. AMBIEN [Concomitant]
     Dosage: 10 MG
     Route: 048
     Dates: start: 20101027
  10. AMIODARONE [Concomitant]
     Dosage: 200 MG
     Route: 048
  11. CITRACAL + D [Concomitant]
     Route: 048
  12. ASPIRIN [Concomitant]
     Dosage: 81 MG
     Route: 048
  13. TYLENOL [Concomitant]
     Route: 048
  14. ULTRAM [Concomitant]
     Route: 048
  15. FISH OIL [Concomitant]
     Dosage: 2000 G
     Route: 048
  16. NITROGLYCERIN [Concomitant]
     Route: 060
  17. SPIRONOLACTONE [Concomitant]
     Dosage: 25 MG
     Route: 048
     Dates: start: 200703
  18. RESTASIS [Concomitant]
     Route: 065
     Dates: start: 20080630, end: 201204
  19. DIGOXIN [Concomitant]
     Route: 065

REACTIONS (3)
  - Gastrointestinal haemorrhage [Unknown]
  - Haemorrhagic anaemia [Unknown]
  - Coagulopathy [Unknown]
